FAERS Safety Report 11843078 (Version 1)
Quarter: 2015Q4

REPORT INFORMATION
  Report Type: Spontaneous
  Country: US (occurrence: US)
  Receive Date: 20151216
  Receipt Date: 20151216
  Transmission Date: 20160305
  Serious: Yes (Other)
  Sender: FDA-Public Use
  Company Number: US-SHIRE-US-000761

PATIENT
  Age: 41 Year
  Sex: Male
  Weight: 77 kg

DRUGS (7)
  1. GATTEX [Suspect]
     Active Substance: TEDUGLUTIDE\WATER
     Indication: SHORT-BOWEL SYNDROME
     Dosage: 25 MCG/KG, DAILY
     Route: 058
     Dates: start: 20130722, end: 20130804
  2. PROBIOTICS NOS [Concomitant]
     Active Substance: PROBIOTICS NOS
     Dosage: UNK, 1X/DAY:QD
  3. GATTEX [Suspect]
     Active Substance: TEDUGLUTIDE\WATER
     Dosage: REDUCED DOSE FROM 25 MCG/KG, DF
     Route: 058
     Dates: start: 20130805, end: 20130901
  4. LIPIDS NOS W/PROTEINS NOS/VITAMINS NOS [Concomitant]
     Indication: MEDICAL DIET
     Dosage: 2500ML, 6 DAYS/WEEK X 12HR/DAY
     Dates: start: 2010
  5. LIPIDS NOS W/PROTEINS NOS/VITAMINS NOS [Concomitant]
     Dosage: 1.8 L DAILY, 5 DAYS A WEEK
  6. PEPPERMINT. [Concomitant]
     Active Substance: PEPPERMINT
     Indication: PRODUCT USED FOR UNKNOWN INDICATION
     Dosage: UNK, 1-2 TIME DAILY
  7. GINGER. [Concomitant]
     Active Substance: GINGER
     Indication: NAUSEA
     Dosage: DF, [PRN]
     Dates: start: 201307

REACTIONS (8)
  - Impaired gastric emptying [Recovered/Resolved]
  - Discomfort [Recovered/Resolved]
  - Vomiting [Recovering/Resolving]
  - Nausea [Not Recovered/Not Resolved]
  - Injection site mass [Recovered/Resolved]
  - Dyspepsia [Not Recovered/Not Resolved]
  - Weight decreased [Not Recovered/Not Resolved]
  - Decreased appetite [Not Recovered/Not Resolved]

NARRATIVE: CASE EVENT DATE: 2013
